FAERS Safety Report 6134452-6 (Version None)
Quarter: 2009Q1

REPORT INFORMATION
  Report Type: 
  Country: None (occurrence: None)
  Receive Date: 20090327
  Receipt Date: 20090319
  Transmission Date: 20090719
  Serious: Yes (Other)
  Sender: FDA-Public Use
  Company Number: CA-AMGEN-KDL318649

PATIENT
  Sex: Female
  Weight: 72.6 kg

DRUGS (3)
  1. ENBREL [Suspect]
     Indication: JUVENILE ARTHRITIS
     Route: 058
     Dates: start: 20081014, end: 20081212
  2. METHOTREXATE [Concomitant]
     Dates: start: 20071105
  3. NAPROSYN [Concomitant]
     Dates: start: 20071105

REACTIONS (3)
  - HALLUCINATION, AUDITORY [None]
  - HALLUCINATION, VISUAL [None]
  - INJECTION SITE PAIN [None]
